FAERS Safety Report 10950320 (Version 1)
Quarter: 2015Q1

REPORT INFORMATION
  Report Type: Spontaneous
  Country: US (occurrence: None)
  Receive Date: 20150226
  Receipt Date: 20150226
  Transmission Date: 20150721
  Serious: Yes (Hospitalization, Other)
  Sender: FDA-Public Use
  Company Number: TPA2009A02525

PATIENT
  Age: 57 Year
  Sex: Male

DRUGS (4)
  1. ACTOPLUS MET [Suspect]
     Active Substance: METFORMIN HYDROCHLORIDE\PIOGLITAZONE HYDROCHLORIDE
     Indication: PRODUCT USED FOR UNKNOWN INDICATION
     Route: 048
     Dates: start: 2004
  2. DILTIAZEM [Concomitant]
     Active Substance: DILTIAZEM
  3. TEKTURNA (ALL OTHER THERAPEUTIC PRODUCTS) [Concomitant]
  4. LANTUS [Concomitant]
     Active Substance: INSULIN GLARGINE

REACTIONS (2)
  - Cardiac failure congestive [None]
  - Cerebrovascular accident [None]

NARRATIVE: CASE EVENT DATE: 2009
